FAERS Safety Report 5369589-2 (Version None)
Quarter: 2007Q2

REPORT INFORMATION
  Report Type: 
  Country: None (occurrence: None)
  Receive Date: 20070625
  Receipt Date: 20070423
  Transmission Date: 20071010
  Serious: Yes (Hospitalization)
  Sender: FDA-Public Use
  Company Number: DE-ASTRAZENECA-2007PK01221

PATIENT
  Age: 687 Month
  Sex: Female

DRUGS (5)
  1. SEROQUEL [Suspect]
     Indication: BIPOLAR DISORDER
     Dosage: 25 MG TO 900 MG DAILY
     Route: 048
     Dates: start: 20070225, end: 20070401
  2. SEROQUEL [Suspect]
     Indication: MANIA
     Dosage: 25 MG TO 900 MG DAILY
     Route: 048
     Dates: start: 20070225, end: 20070401
  3. TIMONIL [Concomitant]
     Indication: BIPOLAR DISORDER
     Route: 048
     Dates: start: 20070225, end: 20070227
  4. TIMONIL [Concomitant]
     Indication: MANIA
     Route: 048
     Dates: start: 20070225, end: 20070227
  5. CYMBALTA [Concomitant]
     Indication: DEPRESSION

REACTIONS (2)
  - ERYTHEMA [None]
  - OEDEMA PERIPHERAL [None]
